APPROVED DRUG PRODUCT: IONTOCAINE
Active Ingredient: EPINEPHRINE; LIDOCAINE HYDROCHLORIDE
Strength: 0.01MG/ML;2%
Dosage Form/Route: SOLUTION;IONTOPHORESIS
Application: N020530 | Product #001
Applicant: IOMED INC
Approved: Dec 21, 1995 | RLD: No | RS: No | Type: DISCN